FAERS Safety Report 9296046 (Version 3)
Quarter: 2013Q2

REPORT INFORMATION
  Report Type: Spontaneous
  Country: US (occurrence: US)
  Receive Date: 20130517
  Receipt Date: 20130610
  Transmission Date: 20140414
  Serious: No
  Sender: FDA-Public Use
  Company Number: US-009507513-1305USA008856

PATIENT
  Age: 56 Year
  Sex: Male

DRUGS (8)
  1. MIRALAX [Suspect]
     Indication: COLONOSCOPY
     Dosage: 1 DF, ONCE
     Route: 048
     Dates: start: 20130517, end: 20130517
  2. MIRALAX [Suspect]
     Indication: MEDICAL OBSERVATION
  3. MIRALAX [Suspect]
     Indication: CONSTIPATION
  4. LISINOPRIL [Concomitant]
     Indication: HYPERTENSION
  5. ADVAIR [Concomitant]
     Indication: ASTHMA
  6. SINGULAIR [Concomitant]
     Indication: ASTHMA
  7. OMEPRAZOLE [Concomitant]
     Indication: GASTROOESOPHAGEAL REFLUX DISEASE
  8. SIMETHICONE [Concomitant]
     Indication: ABDOMINAL DISTENSION

REACTIONS (7)
  - Paraesthesia [Unknown]
  - Wheezing [Unknown]
  - Throat tightness [Recovered/Resolved]
  - Cough [Unknown]
  - Sneezing [Recovered/Resolved]
  - Pruritus [Recovered/Resolved]
  - Off label use [Unknown]
